FAERS Safety Report 18952783 (Version 1)
Quarter: 2021Q1

REPORT INFORMATION
  Report Type: Spontaneous
  Country: US (occurrence: US)
  Receive Date: 20210226
  Receipt Date: 20210226
  Transmission Date: 20210420
  Serious: No
  Sender: FDA-Public Use
  Company Number: None

PATIENT
  Age: 50 Year
  Sex: Female

DRUGS (1)
  1. COPAXONE [Suspect]
     Active Substance: GLATIRAMER ACETATE
     Dosage: OTHER
     Route: 058

REACTIONS (6)
  - Abdominal pain [None]
  - Renal disorder [None]
  - Vision blurred [None]
  - Optic nerve compression [None]
  - Nausea [None]
  - Nodule [None]

NARRATIVE: CASE EVENT DATE: 20210226
